FAERS Safety Report 5713285-6 (Version None)
Quarter: 2008Q2

REPORT INFORMATION
  Report Type: 
  Country: None (occurrence: None)
  Receive Date: 20080422
  Receipt Date: 20080408
  Transmission Date: 20081010
  Serious: Yes (Hospitalization)
  Sender: FDA-Public Use
  Company Number: KR-ELI_LILLY_AND_COMPANY-KR200803005135

PATIENT
  Sex: Male
  Weight: 81.5 kg

DRUGS (8)
  1. LISPRO 25LIS75NPL [Suspect]
     Indication: TYPE 2 DIABETES MELLITUS
     Dosage: 14 UNK, DAILY (1/D)
     Route: 058
     Dates: start: 20080117
  2. FENOFIBRATE [Concomitant]
     Indication: HYPERLIPIDAEMIA
     Dates: start: 20080320
  3. CILAZAPRIL [Concomitant]
     Indication: HYPERTENSION
     Dates: start: 19970909
  4. HYDROCHLOROTHIAZIDE W/IRBESARTAN [Concomitant]
     Indication: HYPERTENSION
     Dates: start: 20040429
  5. ATORVASTATIN CALCIUM [Concomitant]
     Indication: HYPERLIPIDAEMIA
     Dates: start: 20040130
  6. EFONIDIPINE HYDROCHLORIDE [Concomitant]
     Indication: HYPERTENSION
     Dates: start: 20050411
  7. GLIMEPIRIDE [Concomitant]
     Indication: DIABETES MELLITUS
     Dosage: UNK, UNK
     Dates: start: 20060306
  8. METFORMIN HCL [Concomitant]
     Indication: DIABETES MELLITUS
     Dates: start: 20070625

REACTIONS (7)
  - BLOOD GLUCOSE INCREASED [None]
  - BLOOD TRIGLYCERIDES INCREASED [None]
  - BRAIN STEM INFARCTION [None]
  - GLYCOSYLATED HAEMOGLOBIN INCREASED [None]
  - HAEMATOCRIT DECREASED [None]
  - HAEMOGLOBIN DECREASED [None]
  - RED BLOOD CELL SEDIMENTATION RATE INCREASED [None]
